FAERS Safety Report 4499292-2 (Version None)
Quarter: 2004Q4

REPORT INFORMATION
  Report Type: 
  Country: None (occurrence: None)
  Receive Date: 20041111
  Receipt Date: 20041027
  Transmission Date: 20050328
  Serious: Yes (Death, Hospitalization)
  Sender: FDA-Public Use
  Company Number: SA-JNJFOC-20041100206

PATIENT
  Age: 75 Year
  Sex: Male

DRUGS (1)
  1. CAELYX [Suspect]
     Route: 042

REACTIONS (2)
  - DRUG TOXICITY [None]
  - OVERDOSE [None]
